FAERS Safety Report 23172616 (Version 1)
Quarter: 2023Q4

REPORT INFORMATION
  Report Type: Spontaneous
  Country: US (occurrence: US)
  Receive Date: 20231110
  Receipt Date: 20231110
  Transmission Date: 20240110
  Serious: No
  Sender: FDA-Public Use
  Company Number: US-SANOFI-01826888

PATIENT
  Sex: Female
  Weight: 6.1 kg

DRUGS (1)
  1. NEXVIAZYME [Suspect]
     Active Substance: AVALGLUCOSIDASE ALFA-NGPT
     Dosage: 200 (UNITS NOT PROVIDED)
     Route: 065

REACTIONS (1)
  - Incorrect dose administered [Unknown]
